FAERS Safety Report 8622514 (Version 2)
Quarter: 2012Q4

REPORT INFORMATION
  Report Type: Spontaneous
  Country: CA (occurrence: None)
  Receive Date: 20120605
  Receipt Date: 20120921
  Transmission Date: 20130627
  Serious: Yes (Disabling)
  Sender: FDA-Public Use
  Company Number: 2012-002019

PATIENT
  Sex: Female
  Weight: 45.8 kg

DRUGS (2)
  1. ACTONEL [Suspect]
     Indication: OSTEOPOROSIS
     Dosage: took first dose
     Route: 048
     Dates: start: 20111003, end: 20111003
  2. NORVASC [Concomitant]

REACTIONS (6)
  - Abdominal discomfort [None]
  - Asthenia [None]
  - Dizziness [None]
  - Fatigue [None]
  - Headache [None]
  - Pain [None]
